FAERS Safety Report 14219514 (Version 4)
Quarter: 2019Q1

REPORT INFORMATION
  Report Type: Spontaneous
  Country: IT (occurrence: IT)
  Receive Date: 20171123
  Receipt Date: 20190201
  Transmission Date: 20190417
  Serious: Yes (Death, Hospitalization, Other)
  Sender: FDA-Public Use
  Company Number: IT-ALLERGAN-1764893US

PATIENT
  Age: 75 Year
  Sex: Female

DRUGS (7)
  1. PANTOPRAZOLE [Concomitant]
     Active Substance: PANTOPRAZOLE
     Indication: PRODUCT USED FOR UNKNOWN INDICATION
     Route: 065
  2. GAVISCON [Concomitant]
     Active Substance: ALUMINUM HYDROXIDE\MAGNESIUM CARBONATE
  3. LEXOTAN [Concomitant]
     Active Substance: BROMAZEPAM
  4. SYSTANE ULTRA [Concomitant]
     Active Substance: POLYETHYLENE GLYCOL 400\PROPYLENE GLYCOL
     Indication: PRODUCT USED FOR UNKNOWN INDICATION
  5. VISTAGAN 0.5% COLLIRIO, SOLUZIONE [Suspect]
     Active Substance: LEVOBUNOLOL HYDROCHLORIDE
     Indication: OCULAR HYPERTENSION
     Dosage: 1 GTT, QAM
     Route: 047
     Dates: start: 20171027, end: 20171027
  6. ALIFLUS [Concomitant]
     Active Substance: FLUTICASONE PROPIONATE\SALMETEROL XINAFOATE
     Indication: PRODUCT USED FOR UNKNOWN INDICATION
     Dosage: 50 MG, UNK
     Route: 065
  7. ONBREZ BREEZHALER [Concomitant]
     Active Substance: INDACATEROL
     Dosage: 150 MG, UNK

REACTIONS (5)
  - Contraindicated product administered [Unknown]
  - Coma [Unknown]
  - Bronchospasm [Fatal]
  - Respiratory distress [Fatal]
  - Nervous system disorder [Unknown]

NARRATIVE: CASE EVENT DATE: 20171027
